FAERS Safety Report 7356594-X (Version None)
Quarter: 2011Q1

REPORT INFORMATION
  Report Type: 
  Country: None (occurrence: None)
  Receive Date: 20110316
  Receipt Date: 20110303
  Transmission Date: 20110831
  Serious: Yes (Hospitalization)
  Sender: FDA-Public Use
  Company Number: PHHY2010JP85617

PATIENT
  Sex: Female
  Weight: 57 kg

DRUGS (2)
  1. LAMISIL [Suspect]
     Dosage: 125 MG DAILY
     Route: 048
     Dates: start: 20100105, end: 20100127
  2. LAMISIL [Suspect]
     Indication: TINEA PEDIS

REACTIONS (10)
  - ERYTHEMA [None]
  - RASH PUSTULAR [None]
  - BLOOD LACTATE DEHYDROGENASE INCREASED [None]
  - PYREXIA [None]
  - EPIDERMAL NECROSIS [None]
  - ACUTE GENERALISED EXANTHEMATOUS PUSTULOSIS [None]
  - RASH [None]
  - FIBRIN DEGRADATION PRODUCTS INCREASED [None]
  - OEDEMA [None]
  - BLOOD ALBUMIN DECREASED [None]
